FAERS Safety Report 13870244 (Version 2)
Quarter: 2017Q3

REPORT INFORMATION
  Report Type: Spontaneous
  Country: US (occurrence: US)
  Receive Date: 20170815
  Receipt Date: 20170915
  Transmission Date: 20171127
  Serious: No
  Sender: FDA-Public Use
  Company Number: US-009507513-1708USA006353

PATIENT

DRUGS (3)
  1. BAYER ASPIRIN [Concomitant]
     Active Substance: ASPIRIN
     Route: 065
  2. ZEPATIER [Suspect]
     Active Substance: ELBASVIR\GRAZOPREVIR
     Indication: HEPATITIS C
     Dosage: 1 TABLET, EERY DAY, STRENGTH: 50-100 MG
     Route: 048
     Dates: start: 201708, end: 201708
  3. CALCIUM ACETATE. [Concomitant]
     Active Substance: CALCIUM ACETATE
     Route: 065

REACTIONS (4)
  - Dyspnoea [Unknown]
  - Feeling abnormal [Unknown]
  - Headache [Unknown]
  - Malaise [Unknown]

NARRATIVE: CASE EVENT DATE: 2017
